FAERS Safety Report 24386018 (Version 4)
Quarter: 2024Q4

REPORT INFORMATION
  Report Type: Spontaneous
  Country: US (occurrence: US)
  Receive Date: 20241001
  Receipt Date: 20241113
  Transmission Date: 20250114
  Serious: Yes (Life-Threatening, Hospitalization, Other)
  Sender: BRISTOL-MYERS SQUIBB COMPANY
  Company Number: US-BRISTOL-MYERS SQUIBB COMPANY-2024-154394

PATIENT
  Age: 54 Year
  Sex: Female
  Weight: 51.7 kg

DRUGS (12)
  1. ELIQUIS [Suspect]
     Active Substance: APIXABAN
     Indication: Pulmonary embolism
     Dates: start: 20240823, end: 20240916
  2. ELIQUIS [Suspect]
     Active Substance: APIXABAN
     Dates: start: 20240919
  3. ENCORAFENIB [Suspect]
     Active Substance: ENCORAFENIB
     Indication: Colorectal cancer metastatic
     Route: 048
     Dates: start: 20240816, end: 20240915
  4. ENCORAFENIB [Suspect]
     Active Substance: ENCORAFENIB
     Route: 048
     Dates: start: 20241021
  5. CETUXIMAB [Suspect]
     Active Substance: CETUXIMAB
     Indication: Colorectal cancer metastatic
     Dosage: 500 MG/M2
     Route: 042
     Dates: start: 20230816, end: 20240905
  6. CETUXIMAB [Suspect]
     Active Substance: CETUXIMAB
     Route: 042
     Dates: start: 20241021
  7. ASN-007 [Suspect]
     Active Substance: ASN-007
     Indication: Colon cancer metastatic
     Dosage: BID-QW
     Route: 048
     Dates: start: 20230816, end: 20240915
  8. ASN-007 [Suspect]
     Active Substance: ASN-007
     Dosage: BID-QW
     Route: 048
     Dates: start: 20241021
  9. AZITHROMYCIN MONOHYDRATE [Concomitant]
     Active Substance: AZITHROMYCIN MONOHYDRATE
     Indication: Antibiotic prophylaxis
     Dates: start: 20240907, end: 20240915
  10. BACTRIM [Concomitant]
     Active Substance: SULFAMETHOXAZOLE\TRIMETHOPRIM
     Indication: Urinary tract infection
     Dates: start: 20240905, end: 20240915
  11. AUGMENTIN [Concomitant]
     Active Substance: AMOXICILLIN\CLAVULANATE POTASSIUM
     Indication: Product used for unknown indication
     Dates: end: 20240915
  12. HYDROCODONE [Concomitant]
     Active Substance: HYDROCODONE
     Indication: Abdominal pain

REACTIONS (8)
  - Anaemia [Recovered/Resolved]
  - Rectal haemorrhage [Recovered/Resolved]
  - Diarrhoea [Not Recovered/Not Resolved]
  - Haematuria [Not Recovered/Not Resolved]
  - Retinal detachment [Unknown]
  - Pneumothorax [Unknown]
  - Condition aggravated [Recovered/Resolved]
  - Large intestine polyp [Unknown]

NARRATIVE: CASE EVENT DATE: 20240901
